FAERS Safety Report 14941971 (Version 1)
Quarter: 2018Q2

REPORT INFORMATION
  Report Type: Spontaneous
  Country: US (occurrence: US)
  Receive Date: 20180527
  Receipt Date: 20180527
  Transmission Date: 20180711
  Serious: Yes (Other)
  Sender: FDA-Public Use
  Company Number: US-B.I. PHARMACEUTICALS,INC./RIDGEFIELD-2018-BI-027919

PATIENT
  Sex: Female

DRUGS (1)
  1. TRADJENTA [Suspect]
     Active Substance: LINAGLIPTIN
     Indication: TYPE 2 DIABETES MELLITUS
     Route: 048
     Dates: start: 201802, end: 201803

REACTIONS (7)
  - Memory impairment [Recovered/Resolved]
  - Blood creatinine abnormal [Recovered/Resolved]
  - Fibromyalgia [Not Recovered/Not Resolved]
  - Somnolence [Recovered/Resolved]
  - End stage renal disease [Not Recovered/Not Resolved]
  - Weight increased [Not Recovered/Not Resolved]
  - Rash [Recovered/Resolved]
